FAERS Safety Report 5300408-6 (Version None)
Quarter: 2007Q2

REPORT INFORMATION
  Report Type: 
  Country: None (occurrence: None)
  Receive Date: 20070413
  Receipt Date: 20070413
  Transmission Date: 20071010
  Serious: Yes (Hospitalization)
  Sender: FDA-Public Use
  Company Number: None

PATIENT
  Sex: Male
  Weight: 98 kg

DRUGS (3)
  1. PEGINTERFERON ALFA-2B [Suspect]
     Indication: HEPATITIS C
     Dosage: 60MG SC Q WEEK
     Route: 058
     Dates: start: 20070103
  2. RIBAVIRIN [Concomitant]
  3. OMEPRAZOLE [Concomitant]

REACTIONS (6)
  - CHILLS [None]
  - HEADACHE [None]
  - NAUSEA [None]
  - PAIN [None]
  - PHOTOSENSITIVITY REACTION [None]
  - PYREXIA [None]
